FAERS Safety Report 13059492 (Version 1)
Quarter: 2016Q4

REPORT INFORMATION
  Report Type: Spontaneous
  Country: JP (occurrence: JP)
  Receive Date: 20161223
  Receipt Date: 20161223
  Transmission Date: 20170207
  Serious: Yes (Death, Other)
  Sender: FDA-Public Use
  Company Number: JP-JNJFOC-20161219582

PATIENT

DRUGS (39)
  1. PIPAMPERONE HYDROCHLORIDE [Suspect]
     Active Substance: PIPAMPERONE HYDROCHLORIDE
     Indication: DEMENTIA ALZHEIMER^S TYPE
     Route: 065
  2. SULTOPRIDE HYDROCHLORIDE [Suspect]
     Active Substance: SULTOPRIDE HYDROCHLORIDE
     Indication: DEMENTIA ALZHEIMER^S TYPE
     Route: 065
  3. OXYPERTINE [Suspect]
     Active Substance: OXYPERTINE
     Indication: DEMENTIA ALZHEIMER^S TYPE
     Route: 065
  4. QUETIAPINE FUMARATE. [Suspect]
     Active Substance: QUETIAPINE FUMARATE
     Indication: DEMENTIA ALZHEIMER^S TYPE
     Route: 065
  5. CHLORDIAZEPOXIDE. [Suspect]
     Active Substance: CHLORDIAZEPOXIDE
     Indication: DEMENTIA ALZHEIMER^S TYPE
     Route: 065
  6. ETHYL LOFLAZEPATE [Suspect]
     Active Substance: ETHYL LOFLAZEPATE
     Indication: DEMENTIA ALZHEIMER^S TYPE
     Route: 065
  7. LORAZEPAM. [Suspect]
     Active Substance: LORAZEPAM
     Indication: DEMENTIA ALZHEIMER^S TYPE
     Route: 065
  8. FLUNITRAZEPAM [Suspect]
     Active Substance: FLUNITRAZEPAM
     Indication: DEMENTIA ALZHEIMER^S TYPE
     Route: 065
  9. LOFEPRAMINE HYDROCHLORIDE [Suspect]
     Active Substance: LOFEPRAMINE HYDROCHLORIDE
     Indication: DEMENTIA ALZHEIMER^S TYPE
     Route: 065
  10. LITHIUM CARBONATE. [Suspect]
     Active Substance: LITHIUM CARBONATE
     Indication: DEMENTIA ALZHEIMER^S TYPE
     Route: 065
  11. ZOPICLONE [Suspect]
     Active Substance: ZOPICLONE
     Indication: DEMENTIA ALZHEIMER^S TYPE
     Route: 065
  12. NIMETAZEPAM [Suspect]
     Active Substance: NIMETAZEPAM
     Indication: DEMENTIA ALZHEIMER^S TYPE
     Route: 065
  13. NEMONAPRIDE [Suspect]
     Active Substance: NEMONAPRIDE
     Indication: DEMENTIA ALZHEIMER^S TYPE
     Route: 065
  14. CLOMIPRAMINE HYDROCHLORIDE. [Suspect]
     Active Substance: CLOMIPRAMINE HYDROCHLORIDE
     Indication: DEMENTIA ALZHEIMER^S TYPE
     Route: 065
  15. LORMETAZEPAM [Suspect]
     Active Substance: LORMETAZEPAM
     Indication: DEMENTIA ALZHEIMER^S TYPE
     Route: 065
  16. CHLORPROMAZINE HYDROCHLORIDE. [Suspect]
     Active Substance: CHLORPROMAZINE HYDROCHLORIDE
     Indication: DEMENTIA ALZHEIMER^S TYPE
     Route: 065
  17. SULPIRIDE [Suspect]
     Active Substance: SULPIRIDE
     Indication: DEMENTIA ALZHEIMER^S TYPE
     Route: 065
  18. MOSAPRAMINE HYDROCHLORIDE [Suspect]
     Active Substance: MOSAPRAMINE
     Indication: DEMENTIA ALZHEIMER^S TYPE
     Route: 065
  19. CLOCAPRAMINE DIHYDROCHLORIDE [Suspect]
     Active Substance: CLOCAPRAMINE
     Indication: DEMENTIA ALZHEIMER^S TYPE
     Route: 065
  20. AMITRIPTYLINE HYDROCHLORIDE. [Suspect]
     Active Substance: AMITRIPTYLINE HYDROCHLORIDE
     Indication: DEMENTIA ALZHEIMER^S TYPE
     Route: 065
  21. CLOTIAZEPAM [Suspect]
     Active Substance: CLOTIAZEPAM
     Indication: DEMENTIA ALZHEIMER^S TYPE
     Route: 065
  22. BROTIZOLAM [Suspect]
     Active Substance: BROTIZOLAM
     Indication: DEMENTIA ALZHEIMER^S TYPE
     Route: 065
  23. BROMVALERYLUREA [Suspect]
     Active Substance: BROMISOVAL
     Indication: DEMENTIA ALZHEIMER^S TYPE
     Route: 065
  24. NORTRIPTYLINE HYDROCHLORIDE. [Suspect]
     Active Substance: NORTRIPTYLINE HYDROCHLORIDE
     Indication: DEMENTIA ALZHEIMER^S TYPE
     Route: 065
  25. PASSIFLORA EXTRACT [Suspect]
     Active Substance: PASSIFLORA INCARNATA FLOWER
     Indication: DEMENTIA ALZHEIMER^S TYPE
     Route: 065
  26. CHLORPROMAZINE HIBENZATE [Suspect]
     Active Substance: CHLORPROMAZINE HIBENZATE
     Indication: DEMENTIA ALZHEIMER^S TYPE
     Route: 065
  27. LEVOMEPROMAZINE HYDROCHLORIDE [Suspect]
     Active Substance: LEVOMEPROMAZINE HYDROCHLORIDE
     Indication: DEMENTIA ALZHEIMER^S TYPE
     Route: 065
  28. ZOTEPINE [Suspect]
     Active Substance: ZOTEPINE
     Indication: DEMENTIA ALZHEIMER^S TYPE
     Route: 065
  29. ETIZOLAM [Suspect]
     Active Substance: ETIZOLAM
     Indication: DEMENTIA ALZHEIMER^S TYPE
     Route: 065
  30. DONEPEZIL HYDROCHLORIDE. [Suspect]
     Active Substance: DONEPEZIL HYDROCHLORIDE
     Indication: DEMENTIA ALZHEIMER^S TYPE
     Route: 065
  31. HALOPERIDOL. [Suspect]
     Active Substance: HALOPERIDOL
     Indication: DEMENTIA ALZHEIMER^S TYPE
     Route: 065
  32. BROMPERIDOL [Suspect]
     Active Substance: BROMPERIDOL
     Indication: DEMENTIA ALZHEIMER^S TYPE
     Route: 065
  33. THIORIDAZINE HYDROCHLORIDE. [Suspect]
     Active Substance: THIORIDAZINE HYDROCHLORIDE
     Indication: DEMENTIA ALZHEIMER^S TYPE
     Route: 065
  34. ALPRAZOLAM. [Suspect]
     Active Substance: ALPRAZOLAM
     Indication: DEMENTIA ALZHEIMER^S TYPE
     Route: 065
  35. AMOBARBITAL [Suspect]
     Active Substance: AMOBARBITAL
     Indication: DEMENTIA ALZHEIMER^S TYPE
     Route: 065
  36. FLUPHENAZINE [Suspect]
     Active Substance: FLUPHENAZINE
     Indication: DEMENTIA ALZHEIMER^S TYPE
     Route: 065
  37. PROPERICIAZINE [Suspect]
     Active Substance: PERICIAZINE
     Indication: DEMENTIA ALZHEIMER^S TYPE
     Route: 065
  38. DIAZEPAM. [Suspect]
     Active Substance: DIAZEPAM
     Indication: DEMENTIA ALZHEIMER^S TYPE
     Route: 065
  39. BROMAZEPAM [Suspect]
     Active Substance: BROMAZEPAM
     Indication: DEMENTIA ALZHEIMER^S TYPE
     Route: 065

REACTIONS (2)
  - Death [Fatal]
  - Cognitive disorder [Unknown]
